FAERS Safety Report 4999620-5 (Version None)
Quarter: 2006Q2

REPORT INFORMATION
  Report Type: 
  Country: None (occurrence: None)
  Receive Date: 20060511
  Receipt Date: 20060502
  Transmission Date: 20061013
  Serious: Yes (Other)
  Sender: FDA-Public Use
  Company Number: US-JNJFOC-20060301821

PATIENT
  Sex: Female
  Weight: 73.03 kg

DRUGS (21)
  1. REMICADE [Suspect]
     Dosage: TOTAL OF 6 INFUSIONS
     Route: 042
  2. REMICADE [Suspect]
     Indication: RHEUMATOID ARTHRITIS
     Dosage: 6 INFUSIONS AT 3 MG/KG
     Route: 042
  3. METHOTREXATE [Concomitant]
     Dosage: 2.5 MG THREE TABLETS EACH WEEK
  4. FOLIC ACID [Concomitant]
  5. CALCIUM WITH VITAMIN D [Concomitant]
  6. CALCIUM WITH VITAMIN D [Concomitant]
  7. CALCIUM WITH VITAMIN D [Concomitant]
  8. VITAMIN E [Concomitant]
  9. IRON SUPPLEMENT [Concomitant]
  10. MULTI-VITAMIN [Concomitant]
  11. MULTI-VITAMIN [Concomitant]
  12. MULTI-VITAMIN [Concomitant]
  13. MULTI-VITAMIN [Concomitant]
  14. MULTI-VITAMIN [Concomitant]
  15. MULTI-VITAMIN [Concomitant]
  16. MULTI-VITAMIN [Concomitant]
  17. MULTI-VITAMIN [Concomitant]
  18. ASPIRIN [Concomitant]
  19. HYDROXYCHLOROQUINE SULFATE [Concomitant]
  20. CELEBREX [Concomitant]
  21. PLAQUENIL [Concomitant]

REACTIONS (2)
  - B-CELL UNCLASSIFIABLE LYMPHOMA LOW GRADE [None]
  - CHRONIC LYMPHOCYTIC LEUKAEMIA [None]
